FAERS Safety Report 7267394-3 (Version None)
Quarter: 2011Q1

REPORT INFORMATION
  Report Type: 
  Country: None (occurrence: None)
  Receive Date: 20110201
  Receipt Date: 20101108
  Transmission Date: 20110831
  Serious: No
  Sender: FDA-Public Use
  Company Number: A0884242A

PATIENT
  Age: 76 Year
  Sex: Female

DRUGS (2)
  1. ATENOLOL [Concomitant]
  2. ARIXTRA [Suspect]
     Indication: PULMONARY EMBOLISM
     Dosage: 1INJ PER DAY
     Route: 058
     Dates: start: 20100908, end: 20100913

REACTIONS (5)
  - DRY MOUTH [None]
  - RASH [None]
  - OROPHARYNGEAL PAIN [None]
  - APTYALISM [None]
  - AGEUSIA [None]
